FAERS Safety Report 6863184-1 (Version None)
Quarter: 2010Q3

REPORT INFORMATION
  Report Type: 
  Country: None (occurrence: None)
  Receive Date: 20100721
  Receipt Date: 20100714
  Transmission Date: 20110219
  Serious: Yes (Death, Hospitalization)
  Sender: FDA-Public Use
  Company Number: US-GILEAD-2010-0030294

PATIENT
  Sex: Male
  Weight: 90.8 kg

DRUGS (9)
  1. LETAIRIS [Suspect]
     Indication: PULMONARY ARTERIAL HYPERTENSION
     Route: 048
     Dates: start: 20100408, end: 20100518
  2. FUROSEMIDE [Concomitant]
  3. SPIRONOLACTONE [Concomitant]
  4. NADOLOL [Concomitant]
  5. LORAZEPAM [Concomitant]
  6. TRAZODONE HYDROCHLORIDE [Concomitant]
  7. LACTULOSE [Concomitant]
  8. OMEPRAZOLE [Concomitant]
  9. XIFANAN [Concomitant]

REACTIONS (1)
  - DEATH [None]
